FAERS Safety Report 9295817 (Version 2)
Quarter: 2013Q3

REPORT INFORMATION
  Report Type: Spontaneous
  Country: DE (occurrence: DE)
  Receive Date: 20130517
  Receipt Date: 20130702
  Transmission Date: 20140515
  Serious: Yes (Disabling, Other)
  Sender: FDA-Public Use
  Company Number: DE-009507513-1305DEU010270

PATIENT
  Age: 52 Year
  Sex: Male
  Weight: 73 kg

DRUGS (3)
  1. REBETOL [Suspect]
     Indication: HEPATITIS C
     Dosage: ^2-0-3^, CONCENTRATION OF 200
     Route: 048
     Dates: start: 201207, end: 201301
  2. VICTRELIS [Suspect]
     Indication: HEPATITIS C
     Dosage: 4-4-4, CONCENTRATION OF 200
     Route: 048
     Dates: start: 201207, end: 201301
  3. PEGINTRON [Suspect]
     Indication: HEPATITIS C
     Dosage: 1 DF, QW, CONCENTRATION OF 100
     Route: 058
     Dates: start: 201207, end: 201301

REACTIONS (1)
  - Thrombosis [Not Recovered/Not Resolved]
